FAERS Safety Report 12592720 (Version 3)
Quarter: 2016Q3

REPORT INFORMATION
  Report Type: Spontaneous
  Country: US (occurrence: US)
  Receive Date: 20160726
  Receipt Date: 20160906
  Transmission Date: 20161109
  Serious: Yes (Death, Hospitalization, Other)
  Sender: FDA-Public Use
  Company Number: US-PFIZER INC-2016348916

PATIENT
  Age: 52 Year
  Sex: Female

DRUGS (2)
  1. GEMZAR [Suspect]
     Active Substance: GEMCITABINE HYDROCHLORIDE
     Indication: BREAST CANCER
     Dosage: 1185 MG, CYCLIC (3 WEEKS ON 1 OFF, X 6WEEKS - 1 CYCLE = 28 DAYS)
     Route: 042
     Dates: start: 20160412
  2. GEMZAR [Suspect]
     Active Substance: GEMCITABINE HYDROCHLORIDE
     Dosage: 1185 MG, CYCLIC (3 WEEKS ON 1 OFF, X 6WEEKS- 1 CYCLE = 28 DAYS)
     Route: 042
     Dates: start: 20160412, end: 20160707

REACTIONS (5)
  - Hepatic failure [Unknown]
  - Hyperbilirubinaemia [Unknown]
  - Jaundice hepatocellular [Unknown]
  - Hepatic encephalopathy [Unknown]
  - Death [Fatal]
